FAERS Safety Report 18971518 (Version 2)
Quarter: 2021Q1

REPORT INFORMATION
  Report Type: Spontaneous
  Country: US (occurrence: US)
  Receive Date: 20210304
  Receipt Date: 20210309
  Transmission Date: 20210420
  Serious: Yes (Hospitalization, Other)
  Sender: FDA-Public Use
  Company Number: US-AUROBINDO-AUR-APL-2021-008321

PATIENT
  Age: 69 Year
  Sex: Female

DRUGS (1)
  1. BUPIVACAINE HYDROCHLORIDE 0.75% (7.5 MG/ML) [Suspect]
     Active Substance: BUPIVACAINE HYDROCHLORIDE
     Indication: SPINAL ANAESTHESIA
     Dosage: 1.6 MILLILITER 1 TOTAL
     Route: 024

REACTIONS (3)
  - Paraplegia [Not Recovered/Not Resolved]
  - Vasospasm [Not Recovered/Not Resolved]
  - Meningitis chemical [Not Recovered/Not Resolved]
